FAERS Safety Report 11642748 (Version 1)
Quarter: 2015Q4

REPORT INFORMATION
  Report Type: Spontaneous
  Country: CA (occurrence: CA)
  Receive Date: 20151020
  Receipt Date: 20151020
  Transmission Date: 20160304
  Serious: Yes (Death, Hospitalization)
  Sender: FDA-Public Use
  Company Number: CA-ROCHE-1647580

PATIENT
  Age: 62 Year
  Sex: Female

DRUGS (4)
  1. ESBRIET [Suspect]
     Active Substance: PIRFENIDONE
     Indication: IDIOPATHIC PULMONARY FIBROSIS
     Route: 048
  2. PANTOPRAZOLE [Concomitant]
     Active Substance: PANTOPRAZOLE SODIUM
  3. WARFARIN [Concomitant]
     Active Substance: WARFARIN
     Route: 065
  4. DOMPERIDONE [Concomitant]
     Active Substance: DOMPERIDONE
     Route: 065

REACTIONS (6)
  - Atrial thrombosis [Fatal]
  - Pulmonary embolism [Fatal]
  - Acute hepatic failure [Fatal]
  - Coagulopathy [Fatal]
  - Sleep apnoea syndrome [Fatal]
  - Atrial fibrillation [Fatal]
